FAERS Safety Report 5556886-0 (Version None)
Quarter: 2007Q4

REPORT INFORMATION
  Report Type: 
  Country: None (occurrence: None)
  Receive Date: 20071214
  Receipt Date: 20071207
  Transmission Date: 20080405
  Serious: Yes (Hospitalization, Other)
  Sender: FDA-Public Use
  Company Number: PHBS2007BR20571

PATIENT
  Sex: Female
  Weight: 60 kg

DRUGS (6)
  1. SLOW-K [Suspect]
     Indication: MUSCLE SPASMS
     Route: 048
     Dates: start: 19830101
  2. DIGOXIN [Concomitant]
     Dosage: 1 TABLET/DAY
     Route: 048
  3. RAMIPRIL [Concomitant]
     Dosage: 2 TABLETS/DAY
     Route: 048
  4. ATENOLOL [Concomitant]
     Dosage: 25 MG, QD
     Route: 048
  5. LASIX [Concomitant]
     Indication: SWELLING
     Dosage: 1 TABLET, PRN
     Route: 048
  6. ALDACTONE [Concomitant]
     Dosage: 25 MG, QD
     Route: 048

REACTIONS (4)
  - CARDIAC OPERATION [None]
  - DRUG INEFFECTIVE [None]
  - HEPATITIS C [None]
  - MUSCLE SPASMS [None]
